FAERS Safety Report 4361380-9 (Version None)
Quarter: 2004Q2

REPORT INFORMATION
  Report Type: 
  Country: None (occurrence: None)
  Receive Date: 20040517
  Receipt Date: 20040506
  Transmission Date: 20050107
  Serious: Yes (Hospitalization)
  Sender: FDA-Public Use
  Company Number: 2004030587

PATIENT
  Sex: Male

DRUGS (5)
  1. TAHOR (ATORVASTATIN) [Suspect]
     Indication: ILL-DEFINED DISORDER
     Dosage: 10 MG (1 IN 1 D)
  2. AMLODIPINE [Concomitant]
  3. LOSARTAN (LOSARTAN) [Concomitant]
  4. BETA BLOCKING AGENTS (BETA BLOCKING AGENTS) [Concomitant]
  5. DRUG USED IN DIABETES (DRUG USED IN DIABETES) [Concomitant]

REACTIONS (1)
  - MYOCARDIAL INFARCTION [None]
